FAERS Safety Report 22390584 (Version 11)
Quarter: 2025Q4

REPORT INFORMATION
  Report Type: Spontaneous
  Country: US (occurrence: US)
  Receive Date: 20230531
  Receipt Date: 20251002
  Transmission Date: 20260118
  Serious: Yes (Hospitalization, Disabling, Other)
  Sender: AMGEN
  Company Number: US-HORIZON THERAPEUTICS-HZN-2023-004009

PATIENT
  Age: 75 Year
  Sex: Female

DRUGS (83)
  1. TEPEZZA [Suspect]
     Active Substance: TEPROTUMUMAB-TRBW
     Indication: Endocrine ophthalmopathy
     Dosage: UNK, (FIRST INFUSION)
     Route: 042
     Dates: start: 202104
  2. TEPEZZA [Suspect]
     Active Substance: TEPROTUMUMAB-TRBW
     Indication: Graves^ disease
     Dosage: 1500 MILLIGRAM, Q3WK, (THIRD INFUSION)
     Route: 042
     Dates: start: 20210611
  3. TEPEZZA [Suspect]
     Active Substance: TEPROTUMUMAB-TRBW
     Dosage: 1480 MILLIGRAM, Q3WK (FOURTH INFUSION)
     Route: 042
     Dates: start: 20210702
  4. TEPEZZA [Suspect]
     Active Substance: TEPROTUMUMAB-TRBW
     Dosage: 1460 MILLIGRAM, Q3WK (FIFTH INFUSION)
     Route: 042
     Dates: start: 20210723
  5. TEPEZZA [Suspect]
     Active Substance: TEPROTUMUMAB-TRBW
     Dosage: 1480 MILLIGRAM, Q3WK (SIXTH INFUSION)
     Route: 042
     Dates: start: 20210820
  6. TEPEZZA [Suspect]
     Active Substance: TEPROTUMUMAB-TRBW
     Dosage: 1480 MILLIGRAM, Q3WK, (EIGHTH INFUSION)
     Route: 042
     Dates: start: 20211001, end: 20211001
  7. PREDNISONE [Suspect]
     Active Substance: PREDNISONE
     Indication: Pneumonia
     Dosage: 20 MILLIGRAMS, QD (3 TABX 5 DAYS, THEN 2 TABS X 3 DAYS, THEN 1 TABX 3 DAYS, 1/2 TAB X 4 DAYS)
     Route: 048
     Dates: start: 20191210
  8. Zinc complex [Concomitant]
     Dosage: 50 MILLIGRAM, QD
     Route: 048
  9. CHOLECALCIFEROL [Concomitant]
     Active Substance: CHOLECALCIFEROL
     Dosage: 50 MICROGRAM, QD
     Route: 048
  10. ASCORBIC ACID [Concomitant]
     Active Substance: ASCORBIC ACID
     Dosage: 500 MICROGRAM, QD
     Route: 048
  11. METHIMAZOLE [Concomitant]
     Active Substance: METHIMAZOLE
     Dosage: 15 MILLIGRAM, (MONDAY AND THURSDAY)
     Route: 048
     Dates: start: 20210219
  12. METHIMAZOLE [Concomitant]
     Active Substance: METHIMAZOLE
     Dosage: 10 MG, OTHER DAYS
     Route: 048
     Dates: start: 20210219
  13. METHIMAZOLE [Concomitant]
     Active Substance: METHIMAZOLE
     Dosage: 5 MILLIGRAM, Q8H
     Route: 048
  14. METHIMAZOLE [Concomitant]
     Active Substance: METHIMAZOLE
     Dosage: 10 MILLIGRAM, TID
     Route: 048
     Dates: start: 20200323, end: 20200323
  15. METHIMAZOLE [Concomitant]
     Active Substance: METHIMAZOLE
     Dosage: 5 MILLIGRAM, TID
     Route: 048
     Dates: end: 20200323
  16. METOPROLOL SUCCINATE [Concomitant]
     Active Substance: METOPROLOL SUCCINATE
     Dosage: 25 MILLIGRAM, QD
     Route: 048
     Dates: start: 20200324
  17. METOPROLOL SUCCINATE [Concomitant]
     Active Substance: METOPROLOL SUCCINATE
     Dosage: UNK
     Route: 065
     Dates: start: 20210519
  18. KETOCONAZOLE [Concomitant]
     Active Substance: KETOCONAZOLE
     Dosage: UNK, THREE TIMES A WEEK.
     Route: 061
     Dates: start: 20211022, end: 20220411
  19. NIFEDIPINE [Concomitant]
     Active Substance: NIFEDIPINE
     Dosage: 30 MILLIGRAM, QD
     Route: 048
     Dates: start: 20211026, end: 20211216
  20. FLUCONAZOLE [Concomitant]
     Active Substance: FLUCONAZOLE
     Dosage: 150 MILLIGRAM
     Route: 048
     Dates: start: 20211208
  21. DIETARY SUPPLEMENT\HERBALS\MILK THISTLE [Concomitant]
     Active Substance: MILK THISTLE
     Dosage: UNK
     Route: 048
     Dates: end: 20211021
  22. TORSEMIDE [Concomitant]
     Active Substance: TORSEMIDE
     Dosage: UNK
     Route: 065
     Dates: end: 20211021
  23. TORSEMIDE [Concomitant]
     Active Substance: TORSEMIDE
     Dosage: 20 MILLIGRAM, QD
     Route: 048
     Dates: start: 20200324
  24. INFLUENZA VIRUS VACCINE [Concomitant]
     Active Substance: INFLUENZA VIRUS VACCINE
     Dosage: UNK
     Route: 065
  25. COVID-19 vaccine [Concomitant]
     Dosage: UNK
     Route: 065
  26. NEXIUM [Concomitant]
     Active Substance: ESOMEPRAZOLE MAGNESIUM
     Dosage: 20 MILLIGRAM, QD
     Route: 048
  27. ASPIRIN [Concomitant]
     Active Substance: ASPIRIN
     Dosage: 81 MILLIGRAM, QD
     Route: 048
     Dates: start: 20200324
  28. VITAMIN C [Concomitant]
     Active Substance: ASCORBIC ACID
     Dosage: UNK
     Route: 065
  29. ROSUVASTATIN CALCIUM [Concomitant]
     Active Substance: ROSUVASTATIN CALCIUM
     Dosage: 20 MILLIGRAM, QD
     Route: 048
     Dates: start: 20200323
  30. VITAMIN D3 [Concomitant]
     Active Substance: CHOLECALCIFEROL
     Dosage: UNK
     Route: 065
  31. Equate [Concomitant]
     Dosage: UNK
     Route: 048
  32. LOSARTAN [Concomitant]
     Active Substance: LOSARTAN
     Dosage: 25 MILLIGRAM, QD
     Route: 048
  33. LOSARTAN [Concomitant]
     Active Substance: LOSARTAN
     Dosage: 100 MILLIGRAM
     Route: 048
  34. LOSARTAN [Concomitant]
     Active Substance: LOSARTAN
     Dosage: 50 MILLIGRAM, QD
     Route: 048
     Dates: end: 20170602
  35. CRESTOR [Concomitant]
     Active Substance: ROSUVASTATIN CALCIUM
     Dosage: 20 MILLIGRAM, QD (WITH DINNER)
     Route: 048
     Dates: start: 20200316
  36. SERTRALINE [Concomitant]
     Active Substance: SERTRALINE HYDROCHLORIDE
     Dosage: 50 MILLIGRAM, QD
     Route: 048
  37. SERTRALINE [Concomitant]
     Active Substance: SERTRALINE HYDROCHLORIDE
     Dosage: 20 MILLIGRAM
     Route: 048
  38. SERTRALINE [Concomitant]
     Active Substance: SERTRALINE HYDROCHLORIDE
     Dosage: 100 MILLIGRAM
     Route: 048
  39. AMLODIPINE [Concomitant]
     Active Substance: AMLODIPINE BESYLATE
     Dosage: 10 MILLIGRAM, QD
     Route: 048
     Dates: start: 20191010
  40. CARVEDILOL [Concomitant]
     Active Substance: CARVEDILOL
     Dosage: UNK
     Route: 065
     Dates: end: 20180615
  41. OMEPRAZOLE [Concomitant]
     Active Substance: OMEPRAZOLE
     Dosage: 20 MILLIGRAM
     Route: 048
  42. VICTOZA [Concomitant]
     Active Substance: LIRAGLUTIDE
     Dosage: UNK
     Route: 065
  43. COREG [Concomitant]
     Active Substance: CARVEDILOL
     Dosage: 6.25 MILLIGRAM
     Route: 048
  44. FELODIPINE [Concomitant]
     Active Substance: FELODIPINE
     Dosage: UNK
     Route: 065
  45. SIMVASTATIN [Concomitant]
     Active Substance: SIMVASTATIN
     Dosage: UNK
     Route: 065
  46. Zoster [Concomitant]
     Dosage: UNK
     Route: 065
  47. ACETAMINOPHEN [Concomitant]
     Active Substance: ACETAMINOPHEN
     Dosage: UNK
     Route: 065
  48. BISACODYL [Concomitant]
     Active Substance: BISACODYL
     Dosage: UNK
     Route: 065
  49. CLONIDINE HYDROCHLORIDE [Concomitant]
     Active Substance: CLONIDINE HYDROCHLORIDE
     Dosage: 0.1 MILLIGRAM, QD
     Route: 048
     Dates: start: 20191207
  50. LINZESS [Concomitant]
     Active Substance: LINACLOTIDE
     Dosage: 145 MICROGRAM, QD (FOR 8 DAYS)
     Route: 048
  51. TRESIBA [Concomitant]
     Active Substance: INSULIN DEGLUDEC
     Dosage: 20 UNIT, QD ( U-100 INSULIN 100 UNIT /ML (3 ML))
     Route: 058
  52. TOPROL XL [Concomitant]
     Active Substance: METOPROLOL SUCCINATE
     Dosage: 25 MILLIGRAM, QD
     Route: 065
  53. HEPARIN [Concomitant]
     Active Substance: HEPARIN SODIUM
     Dosage: 5000 UNIT, Q8H
     Route: 058
  54. HUMALOG [Concomitant]
     Active Substance: INSULIN LISPRO
     Dosage: UNK UNK, QID ( 4X DAILY W/MEALS)
     Route: 058
     Dates: start: 20200314
  55. PANTOPRAZOLE [Concomitant]
     Active Substance: PANTOPRAZOLE
     Dosage: 40 MILLIGRAM, QD
     Route: 048
  56. TRANSDERM SCOP [Concomitant]
     Active Substance: SCOPOLAMINE
     Dosage: UNK (1 PATCH TRANSDERMAL Q72H )
     Route: 065
     Dates: start: 20200315
  57. LOVENOX [Concomitant]
     Active Substance: ENOXAPARIN SODIUM
     Indication: Thrombosis prophylaxis
     Dosage: 40 MILLIGRAM, QD
     Route: 058
     Dates: start: 20200315
  58. NORVASC [Concomitant]
     Active Substance: AMLODIPINE BESYLATE
     Dosage: 10 MILLIGRAM, QD
     Route: 048
  59. CEPACOL [Concomitant]
     Active Substance: BENZOCAINE
     Dosage: UNK UNK, Q2H
     Route: 048
     Dates: start: 20200319, end: 20200324
  60. Dulcolax [Concomitant]
     Indication: Constipation
     Dosage: 10 MILLIGRAM
     Route: 048
     Dates: start: 20200315, end: 20200324
  61. BENTYL [Concomitant]
     Active Substance: DICYCLOMINE HYDROCHLORIDE
     Indication: Abdominal rigidity
     Dosage: 10 MILLIGRAM, Q6H
     Route: 048
     Dates: start: 20200315, end: 20200316
  62. GLUTOSE [Concomitant]
     Active Substance: DEXTROSE
     Dosage: UNK
     Route: 048
     Dates: start: 20200314
  63. OMNIPAQUE [Concomitant]
     Active Substance: IOHEXOL
     Dosage: 350 MILLIGRAM PER MILLILITRE
     Dates: start: 20200314
  64. ATIVAN [Concomitant]
     Active Substance: LORAZEPAM
     Dosage: 1 MILLIGRAM
     Route: 040
     Dates: start: 20200314
  65. COZAAR [Concomitant]
     Active Substance: LOSARTAN POTASSIUM
     Dosage: 25 MILLIGRAM
     Route: 048
     Dates: start: 20200316
  66. COZAAR [Concomitant]
     Active Substance: LOSARTAN POTASSIUM
     Dosage: 25 MILLIGRAM
     Route: 048
     Dates: start: 20200324
  67. Mag citrate [Concomitant]
     Dosage: 296 MILLILITER
     Route: 048
     Dates: start: 20200314
  68. MAGNESIUM OXIDE [Concomitant]
     Active Substance: MAGNESIUM OXIDE
     Dosage: 400 MILLIGRAM, BID
     Route: 048
     Dates: start: 20200317
  69. MAGNESIUM OXIDE [Concomitant]
     Active Substance: MAGNESIUM OXIDE
     Dosage: 400 MILLIGRAM, QD
     Route: 048
     Dates: start: 20200319
  70. MELATONIN [Concomitant]
     Active Substance: MELATONIN
     Indication: Insomnia
     Dosage: 6 MILLIGRAM, QD (AT BEDTIME AS NEEDED)
     Route: 048
     Dates: start: 20200314
  71. TAPAZOLE [Concomitant]
     Active Substance: METHIMAZOLE
     Dosage: 15 MILLIGRAM, QD
     Route: 048
     Dates: start: 20200314
  72. TAPAZOLE [Concomitant]
     Active Substance: METHIMAZOLE
     Dosage: 10 MILLIGRAM
     Route: 048
     Dates: start: 20200316
  73. LOPRESSOR [Concomitant]
     Active Substance: METOPROLOL TARTRATE
     Dosage: 5 MILLIGRAM
     Route: 040
     Dates: start: 20200314
  74. PROTONIX [Concomitant]
     Active Substance: PANTOPRAZOLE SODIUM
     Dosage: 40 MILLIGRAM, QD
     Route: 048
     Dates: start: 20200314
  75. REFRESH CLASSIC [Concomitant]
     Active Substance: POLYVINYL ALCOHOL\POVIDONE
     Dosage: 1 DROP
     Route: 047
     Dates: start: 20200316
  76. K dur [Concomitant]
     Dosage: 20 MILLIEQUIVALENT, QD
     Route: 048
     Dates: start: 20200318
  77. K dur [Concomitant]
     Dosage: 40 MILLIEQUIVALENT, QD
     Route: 048
     Dates: start: 20200319
  78. K dur [Concomitant]
     Dosage: 60 MILLIEQUIVALENT, QD
     Route: 048
     Dates: start: 20200317
  79. SODIUM CHLORIDE [Concomitant]
     Active Substance: SODIUM CHLORIDE
     Dosage: UNK
     Route: 040
     Dates: start: 20200314
  80. DEMADEX [Concomitant]
     Active Substance: TORSEMIDE
     Dosage: 20 MILLIGRAM, BID
     Route: 048
     Dates: start: 20200321
  81. FIRVANQ [Concomitant]
     Active Substance: VANCOMYCIN HYDROCHLORIDE
     Dosage: 125 MILLIGRAM, QID
     Route: 048
     Dates: start: 20200316
  82. COENZYME Q10 [Concomitant]
     Active Substance: DIETARY SUPPLEMENT\UBIDECARENONE
  83. ZINC [Concomitant]
     Active Substance: ZINC
     Dosage: UNK
     Route: 065

REACTIONS (34)
  - Cardiac failure [Recovered/Resolved]
  - Deafness permanent [Not Recovered/Not Resolved]
  - Oesophageal obstruction [Unknown]
  - Type 2 diabetes mellitus [Not Recovered/Not Resolved]
  - Pneumonia [Unknown]
  - Hyperbilirubinaemia [Unknown]
  - Clostridium difficile colitis [Recovering/Resolving]
  - Acute respiratory failure [Unknown]
  - Deep vein thrombosis [Unknown]
  - Endocrine ophthalmopathy [Not Recovered/Not Resolved]
  - Graves^ disease [Not Recovered/Not Resolved]
  - Coronary artery disease [Unknown]
  - Anxiety [Not Recovered/Not Resolved]
  - Pain [Not Recovered/Not Resolved]
  - Injury [Not Recovered/Not Resolved]
  - Emotional distress [Not Recovered/Not Resolved]
  - Impaired quality of life [Not Recovered/Not Resolved]
  - Discomfort [Unknown]
  - Auditory disorder [Not Recovered/Not Resolved]
  - Eye infection [Not Recovered/Not Resolved]
  - Upper respiratory tract infection [Not Recovered/Not Resolved]
  - Urinary tract infection [Unknown]
  - Dizziness [Not Recovered/Not Resolved]
  - Depression [Not Recovered/Not Resolved]
  - Constipation [Not Recovered/Not Resolved]
  - Foot deformity [Not Recovered/Not Resolved]
  - Pain in extremity [Not Recovered/Not Resolved]
  - Product quality issue [Unknown]
  - Socioeconomic precarity [Not Recovered/Not Resolved]
  - Tinnitus [Not Recovered/Not Resolved]
  - Muscle spasms [Recovered/Resolved]
  - Fatigue [Not Recovered/Not Resolved]
  - Arthralgia [Unknown]
  - Blood pressure systolic increased [Unknown]

NARRATIVE: CASE EVENT DATE: 20191201
